FAERS Safety Report 5109810-9 (Version None)
Quarter: 2006Q3

REPORT INFORMATION
  Report Type: 
  Country: None (occurrence: None)
  Receive Date: 20060918
  Receipt Date: 20060918
  Transmission Date: 20061208
  Serious: No
  Sender: FDA-Public Use
  Company Number: None

PATIENT
  Age: 55 Year
  Sex: Female
  Weight: 70.3075 kg

DRUGS (3)
  1. ZICAM COLD REMEDY ZINCUM GLUCONICUM 2X GELTECH 85004 780N1 EXP 08/04 [Suspect]
     Indication: NASOPHARYNGITIS
     Dosage: 1 PUMP    NASAL  (AS NEEDED ONCE DAILY)
     Route: 045
     Dates: start: 20031201, end: 20040201
  2. ZICAM SPRAY     N.A.      N/A [Suspect]
     Indication: NASAL CONGESTION
     Dosage: 1 SPRAY   NASAL
     Route: 045
     Dates: start: 20031101, end: 20040101
  3. ZICAM SPRAY     N.A.      N/A [Suspect]
     Indication: NASOPHARYNGITIS
     Dosage: 1 SPRAY   NASAL
     Route: 045
     Dates: start: 20031101, end: 20040101

REACTIONS (2)
  - AGEUSIA [None]
  - ANOSMIA [None]
